FAERS Safety Report 9498497 (Version 2)
Quarter: 2013Q3

REPORT INFORMATION
  Report Type: Spontaneous
  Country: US (occurrence: US)
  Receive Date: 20130904
  Receipt Date: 20130911
  Transmission Date: 20140515
  Serious: Yes (Hospitalization)
  Sender: FDA-Public Use
  Company Number: US-GLAXOSMITHKLINE-A1039866A

PATIENT
  Age: 36 Year
  Sex: Female

DRUGS (4)
  1. ADVAIR [Suspect]
     Indication: ASTHMA
     Route: 055
  2. METFORMIN [Concomitant]
  3. WELCHOL [Concomitant]
  4. VENTOLIN [Concomitant]

REACTIONS (6)
  - Staphylococcal infection [Unknown]
  - Sciatic nerve injury [Unknown]
  - Scratch [Unknown]
  - Decreased immune responsiveness [Not Recovered/Not Resolved]
  - Blood test abnormal [Unknown]
  - Accident [Unknown]
